FAERS Safety Report 12948064 (Version 1)
Quarter: 2016Q4

REPORT INFORMATION
  Report Type: Spontaneous
  Country: US (occurrence: US)
  Receive Date: 20161116
  Receipt Date: 20161116
  Transmission Date: 20170207
  Serious: No
  Sender: FDA-Public Use
  Company Number: US-ASTRAZENECA-2016SF17053

PATIENT
  Sex: Female

DRUGS (24)
  1. NOVOLOG [Concomitant]
     Active Substance: INSULIN ASPART
  2. LEVOTHYROXINE. [Concomitant]
     Active Substance: LEVOTHYROXINE
     Dosage: 88 MICROGRAMS, BEFORE BREAKFAST
  3. CERITINIB [Concomitant]
     Active Substance: CERITINIB
     Dosage: 37.5, ONE CAPSULE DAILY
     Route: 048
  4. COLCRYS [Concomitant]
     Active Substance: COLCHICINE
     Dosage: 0.6MG UNKNOWN
  5. TYLENOL [Concomitant]
     Active Substance: ACETAMINOPHEN
     Dosage: 325 TWICE A DAY AS NEEDED
  6. TRAMADOL. [Concomitant]
     Active Substance: TRAMADOL
     Dosage: 50 MG, THREE TIMES A DAY AS NEEDED
  7. PLAVIX [Concomitant]
     Active Substance: CLOPIDOGREL BISULFATE
     Dosage: 75.0MG UNKNOWN
  8. FISH OIL [Concomitant]
     Active Substance: FISH OIL
  9. BYETTA [Suspect]
     Active Substance: EXENATIDE
     Route: 065
  10. LOSARTAN. [Concomitant]
     Active Substance: LOSARTAN
     Dosage: 100.0MG UNKNOWN
  11. MVONEX [Concomitant]
  12. ASA [Concomitant]
     Active Substance: ASPIRIN
     Dosage: 81.0MG UNKNOWN
  13. LIPITOR [Concomitant]
     Active Substance: ATORVASTATIN CALCIUM
     Dosage: 80.0MG UNKNOWN
  14. COREG [Concomitant]
     Active Substance: CARVEDILOL
  15. COMPAZINE [Concomitant]
     Active Substance: PROCHLORPERAZINE MALEATE
     Dosage: AS REQUIRED
  16. LANTUS [Concomitant]
     Active Substance: INSULIN GLARGINE
     Dosage: 40 UNITS AT BREAKFAST
  17. ULTRAM [Concomitant]
     Active Substance: TRAMADOL HYDROCHLORIDE
     Dosage: AS REQUIRED
  18. PROCHLORPERAZINE. [Concomitant]
     Active Substance: PROCHLORPERAZINE
     Dosage: 10.0MG AS REQUIRED
  19. MULTIVITAMIN [Concomitant]
     Active Substance: VITAMINS
     Dosage: A DAY
  20. LISINOPRIL. [Suspect]
     Active Substance: LISINOPRIL
     Route: 048
  21. ALLOPURINOL. [Concomitant]
     Active Substance: ALLOPURINOL
  22. DUAL ANTI-PLATELET THERAPY [Concomitant]
  23. SUTENT [Suspect]
     Active Substance: SUNITINIB MALATE
     Indication: RENAL CELL CARCINOMA
     Dosage: 37.5MG DAILY, 14 DAYS ON, 7 DAYS OFF
     Route: 048
     Dates: start: 20160328, end: 20160819
  24. SUTENT [Suspect]
     Active Substance: SUNITINIB MALATE
     Indication: RENAL CELL CARCINOMA
     Dosage: 37.5MG DAILY, 14 DAYS ON, 7 DAYS OFF
     Route: 048
     Dates: start: 20160920

REACTIONS (6)
  - Dyslipidaemia [Unknown]
  - Chronic kidney disease [Unknown]
  - Chronic obstructive pulmonary disease [Unknown]
  - Gout [Unknown]
  - Drug hypersensitivity [Unknown]
  - Hypothyroidism [Unknown]
